FAERS Safety Report 4684629-1 (Version None)
Quarter: 2005Q2

REPORT INFORMATION
  Report Type: 
  Country: None (occurrence: None)
  Receive Date: 20050603
  Receipt Date: 20050519
  Transmission Date: 20051028
  Serious: Yes (Hospitalization)
  Sender: FDA-Public Use
  Company Number: 2005BI006729

PATIENT
  Age: 68 Year
  Sex: Female

DRUGS (13)
  1. AVONEX [Suspect]
     Indication: MULTIPLE SCLEROSIS
     Dosage: 30 UG; QW; IM
     Route: 030
     Dates: start: 20010905, end: 20031101
  2. AVONEX [Suspect]
     Indication: MULTIPLE SCLEROSIS
     Dosage: 30 UG; QW; IM
     Route: 030
     Dates: start: 20031101
  3. NORVASC [Concomitant]
  4. DIOVAN [Concomitant]
  5. COUMADIN [Concomitant]
  6. KLONOPIN [Concomitant]
  7. LESCOL XL [Concomitant]
  8. SYMMETREL [Concomitant]
  9. LIBRIUM [Concomitant]
  10. UNITHROID [Concomitant]
  11. VITAMIN E [Concomitant]
  12. VITAMIN B-12 [Concomitant]
  13. DARVOCET-N 100 [Concomitant]

REACTIONS (1)
  - ATRIAL FIBRILLATION [None]
